FAERS Safety Report 18593184 (Version 1)
Quarter: 2020Q4

REPORT INFORMATION
  Report Type: Spontaneous
  Country: CA (occurrence: CA)
  Receive Date: 20201209
  Receipt Date: 20201209
  Transmission Date: 20210114
  Serious: Yes (Hospitalization, Other)
  Sender: FDA-Public Use
  Company Number: CA-ACCORD-210546

PATIENT
  Age: 60 Year
  Sex: Male

DRUGS (2)
  1. CARBOPLATIN. [Suspect]
     Active Substance: CARBOPLATIN
     Indication: GLIOBLASTOMA
     Route: 013
  2. TEMOZOLOMIDE. [Concomitant]
     Active Substance: TEMOZOLOMIDE
     Indication: GLIOBLASTOMA

REACTIONS (6)
  - Weight decreased [Recovered/Resolved]
  - Off label use [Unknown]
  - Quality of life decreased [Recovering/Resolving]
  - Nausea [Recovered/Resolved]
  - General physical health deterioration [Recovering/Resolving]
  - Dysgeusia [Recovered/Resolved]
